FAERS Safety Report 5510186-3 (Version None)
Quarter: 2007Q4

REPORT INFORMATION
  Report Type: 
  Country: None (occurrence: None)
  Receive Date: 20071106
  Receipt Date: 20071029
  Transmission Date: 20080405
  Serious: Yes (Hospitalization)
  Sender: FDA-Public Use
  Company Number: ADE2007-0028

PATIENT
  Age: 54 Year
  Sex: Female

DRUGS (3)
  1. CITALOPRAM HYDROBROMIDE [Suspect]
     Indication: DEPRESSION
     Dosage: 20MG - DAILY - PO
     Route: 048
  2. CANDESARTAN CILEKSTIL [Concomitant]
  3. CARVEDILOL [Concomitant]

REACTIONS (9)
  - BLOOD POTASSIUM DECREASED [None]
  - DELUSION [None]
  - DISORIENTATION [None]
  - DYSARTHRIA [None]
  - FATIGUE [None]
  - HALLUCINATION, VISUAL [None]
  - INAPPROPRIATE ANTIDIURETIC HORMONE SECRETION [None]
  - PARAESTHESIA [None]
  - SOMNOLENCE [None]
